FAERS Safety Report 6527010-2 (Version None)
Quarter: 2010Q1

REPORT INFORMATION
  Report Type: 
  Country: None (occurrence: None)
  Receive Date: 20100105
  Receipt Date: 20091229
  Transmission Date: 20100710
  Serious: Yes (Hospitalization)
  Sender: FDA-Public Use
  Company Number: DE-ROCHE-677057

PATIENT
  Sex: Female
  Weight: 73 kg

DRUGS (21)
  1. METHOXY POLYETHYLENE GLYCOL-EPOETIN BETA [Suspect]
     Indication: DRUG USE FOR UNKNOWN INDICATION
     Route: 065
  2. PROGRAF [Suspect]
     Indication: DRUG USE FOR UNKNOWN INDICATION
     Dosage: FREQUENCY: 4-0-3-0
     Route: 048
     Dates: start: 20080822, end: 20091109
  3. PROGRAF [Suspect]
     Dosage: FREQUENCY: 3-0-3-0
     Route: 048
     Dates: start: 20091109
  4. MYFORTIC [Suspect]
     Indication: DRUG USE FOR UNKNOWN INDICATION
     Dosage: FREQUENCY: 1-0-1-0
     Route: 048
     Dates: start: 20071010
  5. FUROSEMID [Concomitant]
     Dosage: FREQUENCY: 1-1-0-0
     Route: 048
     Dates: start: 20090822, end: 20091111
  6. FUROSEMID [Concomitant]
     Dosage: FREQUENCY: 1-0-1-0
     Route: 048
     Dates: start: 20091111, end: 20091211
  7. FUROSEMID [Concomitant]
     Dosage: FREQUENCY: 1-1-0-0
     Route: 048
     Dates: start: 20091211
  8. AMLODIPINE [Concomitant]
     Route: 048
     Dates: start: 20091020, end: 20091023
  9. AMLODIPINE [Concomitant]
     Route: 048
     Dates: start: 20091023, end: 20091211
  10. BLOPRESS [Concomitant]
     Dosage: FREQUENCY: 0-1-0-0
     Route: 048
     Dates: start: 20070321, end: 20090925
  11. BLOPRESS [Concomitant]
     Dosage: FREQUENCY: 1-0-1-0
     Route: 048
     Dates: start: 20090925
  12. CARVEDILOL [Concomitant]
     Dosage: FREQUENCY: 1-0-0-0
     Route: 048
     Dates: start: 20090323, end: 20091019
  13. CARVEDILOL [Concomitant]
     Dosage: FREQUENCY: 1-0-1-0
     Route: 048
     Dates: start: 20091019
  14. L-THYROXIN [Concomitant]
     Dosage: FREQUENCY: 1-0-0-0
     Route: 048
     Dates: start: 20070320
  15. PANTOPRAZOLE [Concomitant]
     Dosage: FREQUENCY: 1-0-0-0
     Route: 048
     Dates: start: 20070320, end: 20091222
  16. EZETROL [Concomitant]
     Dosage: FREQUENCY: 0-0-0-1
     Route: 048
     Dates: start: 20070321, end: 20091111
  17. EZETROL [Concomitant]
     Dosage: FREQUENCY: 0-0-1-0
     Route: 048
     Dates: start: 20091111, end: 20091202
  18. NOVONORM [Concomitant]
     Dosage: FREQUENCY: 1-0-0-0
     Route: 048
     Dates: start: 20090323
  19. DOXAZOSIN [Concomitant]
     Dosage: FREQUENCY: 1-0-1-0
     Route: 048
     Dates: start: 20091111, end: 20091211
  20. DOXAZOSIN [Concomitant]
     Dosage: FREQUENCY: 1-1-1-1
     Route: 048
     Dates: start: 20091211
  21. FERROUS SULFATE TAB [Concomitant]
     Dosage: FREQUENCY: 1-0-0-0
     Route: 048
     Dates: start: 20081114, end: 20090821

REACTIONS (2)
  - HAEMOLYTIC ANAEMIA [None]
  - PANCYTOPENIA [None]
